FAERS Safety Report 7822682-4 (Version None)
Quarter: 2011Q4

REPORT INFORMATION
  Report Type: 
  Country: None (occurrence: None)
  Receive Date: 20111018
  Receipt Date: 20111014
  Transmission Date: 20120403
  Serious: Yes (Other)
  Sender: FDA-Public Use
  Company Number: AU-MERCK-1110USA01692

PATIENT
  Age: 40 Year
  Sex: Male

DRUGS (3)
  1. JANUMET [Suspect]
     Route: 048
     Dates: end: 20111012
  2. METFORMIN HCL [Concomitant]
     Route: 065
     Dates: end: 20110101
  3. DIAMICRON [Concomitant]
     Route: 065
     Dates: end: 20110101

REACTIONS (2)
  - ASTHMA [None]
  - CARDIAC FAILURE [None]
